FAERS Safety Report 10371953 (Version 3)
Quarter: 2014Q4

REPORT INFORMATION
  Report Type: Report from Study
  Country: AU (occurrence: AU)
  Receive Date: 20140808
  Receipt Date: 20141209
  Transmission Date: 20150528
  Serious: Yes (Hospitalization)
  Sender: FDA-Public Use
  Company Number: AU-GILEAD-2014-0110526

PATIENT
  Age: 76 Year
  Sex: Female

DRUGS (11)
  1. DIFLUCAN [Concomitant]
     Active Substance: FLUCONAZOLE
  2. RITUXIMAB [Suspect]
     Active Substance: RITUXIMAB
     Indication: CHRONIC LYMPHOCYTIC LEUKAEMIA
     Dosage: 500 MG/M2, CYCLICAL
     Route: 042
     Dates: start: 20140520
  3. MOTILIUM [Concomitant]
     Active Substance: DOMPERIDONE
  4. PANADOL [Concomitant]
     Active Substance: ACETAMINOPHEN
  5. ORION TEMOZOLOMIDE [Concomitant]
  6. BACTRIM DS [Concomitant]
     Active Substance: SULFAMETHOXAZOLE\TRIMETHOPRIM
  7. IDELALISIB [Suspect]
     Active Substance: IDELALISIB
     Indication: CHRONIC LYMPHOCYTIC LEUKAEMIA
     Dosage: 150 MG, BID
     Route: 048
     Dates: start: 20140520
  8. BENDAMUSTINE [Suspect]
     Active Substance: BENDAMUSTINE
     Indication: CHRONIC LYMPHOCYTIC LEUKAEMIA
     Dosage: 70 MG/M2, CYCLICAL
     Route: 042
     Dates: start: 20140520
  9. AVENTS [Concomitant]
  10. SUPER MAGNESIUM [Concomitant]
  11. NORMISON                           /00393701/ [Concomitant]

REACTIONS (1)
  - Febrile neutropenia [Recovered/Resolved]

NARRATIVE: CASE EVENT DATE: 20140728
